FAERS Safety Report 5870651-6 (Version None)
Quarter: 2008Q3

REPORT INFORMATION
  Report Type: 
  Country: None (occurrence: None)
  Receive Date: 20080904
  Receipt Date: 20080827
  Transmission Date: 20090109
  Serious: Yes (Other)
  Sender: FDA-Public Use
  Company Number: PHHY2008DE19599

PATIENT
  Sex: Female

DRUGS (3)
  1. AREDIA [Suspect]
     Dosage: UNK
     Route: 042
     Dates: start: 20070801
  2. HERCEPTIN [Suspect]
     Indication: BREAST CANCER
  3. GEMCITABINE [Concomitant]

REACTIONS (1)
  - VISUAL IMPAIRMENT [None]
